FAERS Safety Report 7814892-7 (Version None)
Quarter: 2011Q4

REPORT INFORMATION
  Report Type: 
  Country: None (occurrence: None)
  Receive Date: 20111014
  Receipt Date: 20111010
  Transmission Date: 20120403
  Serious: Yes (Hospitalization)
  Sender: FDA-Public Use
  Company Number: AU-B.I. PHARMACEUTICALS,INC./RIDGEFIELD-2011-AU-01061AU

PATIENT
  Sex: Female

DRUGS (5)
  1. PRADAXA [Suspect]
     Indication: CEREBROVASCULAR ACCIDENT PROPHYLAXIS
     Dosage: 300 MG
     Dates: start: 20110824, end: 20110829
  2. PRADAXA [Suspect]
     Indication: ATRIAL FIBRILLATION
  3. DIGOXIN [Concomitant]
     Dates: start: 20071110
  4. RABEPRAZOLE SODIUM [Concomitant]
     Dates: start: 20041005
  5. METOPROLOL TARTRATE [Concomitant]
     Dates: start: 20071215

REACTIONS (2)
  - ARTHRALGIA [None]
  - HAEMATOMA [None]
